FAERS Safety Report 4521804-0 (Version None)
Quarter: 2004Q4

REPORT INFORMATION
  Report Type: 
  Country: None (occurrence: None)
  Receive Date: 20041209
  Receipt Date: 20041201
  Transmission Date: 20050328
  Serious: Yes (Hospitalization)
  Sender: FDA-Public Use
  Company Number: US-JNJFOC-20041200900

PATIENT
  Sex: Female
  Weight: 109.77 kg

DRUGS (3)
  1. TOPAMAX [Suspect]
     Indication: MIGRAINE
     Route: 049
  2. DARVOCET [Concomitant]
  3. DARVOCET [Concomitant]

REACTIONS (2)
  - GENITAL DISORDER FEMALE [None]
  - UTERINE DISORDER [None]
